FAERS Safety Report 5526072-9 (Version None)
Quarter: 2007Q4

REPORT INFORMATION
  Report Type: 
  Country: None (occurrence: None)
  Receive Date: 20071126
  Receipt Date: 20071119
  Transmission Date: 20080405
  Serious: Yes (Other)
  Sender: FDA-Public Use
  Company Number: FR-MERCK-0711FRA00007

PATIENT
  Age: 68 Year
  Sex: Female

DRUGS (9)
  1. ZOCOR [Suspect]
     Indication: DYSLIPIDAEMIA
     Route: 048
  2. PIOGLITAZONE HCL [Suspect]
     Indication: TYPE 2 DIABETES MELLITUS
     Route: 048
     Dates: start: 20060201
  3. GLIMEPIRIDE [Concomitant]
     Indication: TYPE 2 DIABETES MELLITUS
     Route: 048
  4. METFORMIN [Concomitant]
     Indication: TYPE 2 DIABETES MELLITUS
     Route: 048
  5. QUINAPRIL HYDROCHLORIDE [Concomitant]
     Indication: HYPERTENSION
     Route: 048
  6. INDAPAMIDE [Concomitant]
     Indication: HYPERTENSION
     Route: 048
  7. BACLOFEN [Concomitant]
     Indication: SPASTIC PARAPLEGIA
     Route: 061
  8. TETRAZEPAM [Concomitant]
     Indication: MUSCLE CONTRACTURE
     Route: 048
  9. HEPTAMINOL ADENYLATE [Concomitant]
     Route: 048

REACTIONS (1)
  - FEMUR FRACTURE [None]
